FAERS Safety Report 7545983-6 (Version None)
Quarter: 2011Q2

REPORT INFORMATION
  Report Type: 
  Country: None (occurrence: None)
  Receive Date: 20110614
  Receipt Date: 20110610
  Transmission Date: 20111010
  Serious: Yes (Other)
  Sender: FDA-Public Use
  Company Number: US-PFIZER INC-2011112264

PATIENT
  Sex: Female
  Weight: 59.9 kg

DRUGS (6)
  1. XANAX [Suspect]
     Indication: ANXIETY
     Dosage: 0.5 MG, AS NEEDED
     Route: 048
     Dates: start: 20080101
  2. XANAX [Suspect]
     Dosage: UNK
     Route: 048
  3. XANAX [Suspect]
     Dosage: 1 MG, UNK
     Dates: end: 20110512
  4. SYNTHROID [Concomitant]
     Indication: THYROID DISORDER
     Dosage: UNK
  5. XANAX [Suspect]
     Dosage: 0.5 MG, UNK
     Dates: start: 20110513
  6. PREVACID [Concomitant]
     Dosage: UNK

REACTIONS (24)
  - OESOPHAGEAL PAIN [None]
  - DRUG ADMINISTRATION ERROR [None]
  - HEADACHE [None]
  - MOVEMENT DISORDER [None]
  - SKIN BURNING SENSATION [None]
  - ABDOMINAL PAIN [None]
  - INSOMNIA [None]
  - MALAISE [None]
  - BLOOD URINE PRESENT [None]
  - DIARRHOEA [None]
  - DECREASED APPETITE [None]
  - BURNING SENSATION [None]
  - FATIGUE [None]
  - PALPITATIONS [None]
  - VOMITING [None]
  - DRY MOUTH [None]
  - FEELING ABNORMAL [None]
  - ORAL PAIN [None]
  - ANORECTAL DISCOMFORT [None]
  - GLOSSODYNIA [None]
  - MUSCLE SPASMS [None]
  - ABDOMINAL PAIN UPPER [None]
  - DYSPEPSIA [None]
  - WEIGHT INCREASED [None]
